FAERS Safety Report 5722831-8 (Version None)
Quarter: 2008Q2

REPORT INFORMATION
  Report Type: 
  Country: None (occurrence: None)
  Receive Date: 20080429
  Receipt Date: 20071227
  Transmission Date: 20081010
  Serious: No
  Sender: FDA-Public Use
  Company Number: US-ASTRAZENECA-2007UW28945

PATIENT
  Age: 68 Year
  Sex: Male
  Weight: 79.4 kg

DRUGS (4)
  1. NEXIUM [Suspect]
     Indication: HIATUS HERNIA
     Route: 048
     Dates: start: 20071214
  2. LIPITOR [Concomitant]
  3. DYAZIDE [Concomitant]
  4. METFORMIN HCL [Concomitant]

REACTIONS (4)
  - DYSPHAGIA [None]
  - ILL-DEFINED DISORDER [None]
  - PHARYNGOLARYNGEAL PAIN [None]
  - RASH [None]
